FAERS Safety Report 5113651-6 (Version None)
Quarter: 2006Q3

REPORT INFORMATION
  Report Type: 
  Country: None (occurrence: None)
  Receive Date: 20060925
  Receipt Date: 20060913
  Transmission Date: 20061208
  Serious: Yes (Hospitalization, Other)
  Sender: FDA-Public Use
  Company Number: PHBS2006BR14250

PATIENT
  Age: 52 Year
  Sex: Female

DRUGS (4)
  1. LEPONEX [Suspect]
     Indication: SCHIZOPHRENIA
     Dosage: 200 MG MORNING/250 MG EVENING
     Route: 048
     Dates: start: 20030101
  2. DEPAKENE [Concomitant]
     Indication: MOOD ALTERED
     Dosage: 2.5 ML, BID
     Route: 048
  3. HALDOL SOLUTAB [Concomitant]
     Indication: AGGRESSION
     Dosage: 10 DRP, BID
  4. FENERGAN [Concomitant]
     Dosage: 25 MG, QD

REACTIONS (9)
  - ANAEMIA [None]
  - ANOREXIA [None]
  - ASTHENIA [None]
  - EMPHYSEMA [None]
  - GASTRITIS HAEMORRHAGIC [None]
  - HAEMATOCRIT DECREASED [None]
  - HAEMOGLOBIN DECREASED [None]
  - NAUSEA [None]
  - WEIGHT DECREASED [None]
